FAERS Safety Report 7340053-4 (Version None)
Quarter: 2011Q1

REPORT INFORMATION
  Report Type: 
  Country: None (occurrence: None)
  Receive Date: 20110309
  Receipt Date: 20110210
  Transmission Date: 20110831
  Serious: No
  Sender: FDA-Public Use
  Company Number: US-B.I. PHARMACEUTICALS,INC./RIDGEFIELD-2011-BP-05347BP

PATIENT
  Sex: Male

DRUGS (15)
  1. PRADAXA [Suspect]
     Indication: ATRIAL FIBRILLATION
     Dosage: 300 MG
     Route: 048
     Dates: start: 20110101
  2. BENICAR [Concomitant]
     Indication: HYPERTENSION
  3. LISINOPRIL [Concomitant]
     Indication: HYPERTENSION
  4. METFORMIN [Concomitant]
     Indication: DIABETES MELLITUS
  5. GLYBURIDE [Concomitant]
     Indication: DIABETES MELLITUS
  6. FUROSEMIDE [Concomitant]
     Indication: FLUID RETENTION
  7. PROPAFENONE [Concomitant]
     Indication: ATRIAL FIBRILLATION
  8. SINGULAIR [Concomitant]
     Indication: SINUS DISORDER
  9. ASA [Concomitant]
     Indication: PROPHYLAXIS
  10. VYTORIN [Concomitant]
     Indication: BLOOD CHOLESTEROL INCREASED
  11. LABETALOL HCL [Concomitant]
     Indication: HYPERTENSION
  12. NORVASC [Concomitant]
     Indication: HYPERTENSION
  13. MINOXIDIL [Concomitant]
     Indication: HYPERTENSION
  14. OMEPRAZOLE [Concomitant]
     Indication: GASTROOESOPHAGEAL REFLUX DISEASE
  15. POTASSIUM [Concomitant]
     Indication: SUPPLEMENTATION THERAPY

REACTIONS (1)
  - THROAT IRRITATION [None]
